FAERS Safety Report 5834934-8 (Version None)
Quarter: 2008Q3

REPORT INFORMATION
  Report Type: 
  Country: None (occurrence: None)
  Receive Date: 20080801
  Receipt Date: 20080717
  Transmission Date: 20090109
  Serious: Yes (Death)
  Sender: FDA-Public Use
  Company Number: 2008S1012724

PATIENT
  Age: 77 Year
  Sex: Male

DRUGS (7)
  1. MELOXICAM [Suspect]
     Indication: DRUG USE FOR UNKNOWN INDICATION
     Dates: start: 20050101
  2. CEPHALEXIN [Concomitant]
  3. CO-CODAMOL [Concomitant]
  4. COMBIVENT [Concomitant]
  5. FRUSEMIDE [Concomitant]
  6. PARACETAMOL [Concomitant]
  7. RAMIPRIL [Concomitant]

REACTIONS (2)
  - CORONARY ARTERY DISEASE [None]
  - VENTRICULAR HYPERTROPHY [None]
